FAERS Safety Report 9644888 (Version 2)
Quarter: 2013Q4

REPORT INFORMATION
  Report Type: Report from Study
  Country: AU (occurrence: AU)
  Receive Date: 20131025
  Receipt Date: 20131206
  Transmission Date: 20140711
  Serious: Yes (Hospitalization, Other)
  Sender: FDA-Public Use
  Company Number: PHHY2013AU120047

PATIENT
  Sex: Male

DRUGS (8)
  1. CLOZARIL [Suspect]
     Dosage: 550 MG (50 MG MANE/500 MG NOCTE)
     Dates: start: 20050506
  2. CLOZARIL [Suspect]
     Dosage: 600 MG, QD
     Dates: end: 20131021
  3. AMISULPRIDE [Concomitant]
     Dosage: 600 MG, BID
  4. OLANZAPINE [Concomitant]
     Dosage: 10 MG, TID
  5. SODIUM VALPROATE [Concomitant]
     Dosage: 1500 MG, QD (500 MG MANE AND 1000 MG NOCTE)
  6. DIAZEPAM [Concomitant]
     Dosage: 5 MG, AT NIGHT
  7. DIAZEPAM [Concomitant]
     Dosage: 5-10 MG, PRN
  8. ZUCLOPENTHIXOL ACETATE [Concomitant]
     Dosage: 100 MG,
     Route: 030

REACTIONS (9)
  - Withdrawal syndrome [Unknown]
  - Paranoia [Unknown]
  - Delusional disorder, unspecified type [Unknown]
  - Abnormal behaviour [Unknown]
  - Thinking abnormal [Unknown]
  - Aggression [Unknown]
  - Neglect of personal appearance [Unknown]
  - Inappropriate affect [Unknown]
  - Irritability [Unknown]
